FAERS Safety Report 8414981-2 (Version None)
Quarter: 2012Q2

REPORT INFORMATION
  Report Type: 
  Country: None (occurrence: None)
  Receive Date: 20120530
  Receipt Date: 20120523
  Transmission Date: 20120825
  Serious: Yes (Hospitalization)
  Sender: FDA-Public Use
  Company Number: DSA_57493_2012

PATIENT
  Sex: Female

DRUGS (3)
  1. MORPHINE [Concomitant]
  2. XENAZINE [Suspect]
     Indication: DYSTONIA
     Dosage: (12.5 MG TID ORAL), (12.5 MG BID ORAL)
     Route: 048
     Dates: start: 20090201, end: 20120501
  3. XENAZINE [Suspect]
     Indication: DYSTONIA
     Dosage: (12.5 MG TID ORAL), (12.5 MG BID ORAL)
     Route: 048
     Dates: start: 20120501

REACTIONS (1)
  - DEVICE INFUSION ISSUE [None]
